FAERS Safety Report 5828822-0 (Version None)
Quarter: 2008Q3

REPORT INFORMATION
  Report Type: 
  Country: None (occurrence: None)
  Receive Date: 20080729
  Receipt Date: 20080722
  Transmission Date: 20090109
  Serious: Yes (Hospitalization)
  Sender: FDA-Public Use
  Company Number: A-CH2008-21323

PATIENT
  Age: 55 Year
  Sex: Female
  Weight: 58.6 kg

DRUGS (5)
  1. TRACLEER [Suspect]
     Indication: DRUG USE FOR UNKNOWN INDICATION
     Dosage: 125 MG, BID, ORAL
     Route: 048
     Dates: start: 20071207
  2. MODURETIC 5-50 [Concomitant]
  3. ORFARIN (WARFARIN) [Concomitant]
  4. ADDI-K (POTASSIUM CHLORIDE) [Concomitant]
  5. ATENOL (ATENOLOL) [Concomitant]

REACTIONS (1)
  - ATRIAL FLUTTER [None]
